FAERS Safety Report 7283224-8 (Version None)
Quarter: 2011Q1

REPORT INFORMATION
  Report Type: 
  Country: None (occurrence: None)
  Receive Date: 20110209
  Receipt Date: 20110127
  Transmission Date: 20110831
  Serious: Yes (Other)
  Sender: FDA-Public Use
  Company Number: PHHY2011DE06617

PATIENT
  Age: 65 Year
  Sex: Male

DRUGS (1)
  1. SANDOSTATIN LAR [Suspect]
     Indication: METASTASES TO LIVER
     Dosage: 20 MG, QMO
     Dates: start: 20101101

REACTIONS (1)
  - PROTHROMBIN TIME PROLONGED [None]
